FAERS Safety Report 8282308-5 (Version None)
Quarter: 2012Q2

REPORT INFORMATION
  Report Type: 
  Country: None (occurrence: None)
  Receive Date: 20120413
  Receipt Date: 20120413
  Transmission Date: 20120825
  Serious: Yes (Other)
  Sender: FDA-Public Use
  Company Number: None

PATIENT
  Age: 26 Year
  Sex: Male
  Weight: 61 kg

DRUGS (4)
  1. ASCORBIC ACID EFFERVESCENT TABLETS [Concomitant]
     Route: 048
  2. LORATADINE AND PSEUDOEPHEDRINE SULFATE [Suspect]
     Indication: INFLUENZA LIKE ILLNESS
     Dosage: 1 TABLET
     Route: 048
     Dates: start: 20120210, end: 20120214
  3. BRONCHICUM SYRUP [Concomitant]
     Route: 048
  4. AUGMENTIN '125' [Concomitant]
     Route: 048

REACTIONS (3)
  - HYPOAESTHESIA [None]
  - ANORGASMIA [None]
  - SEMEN VISCOSITY INCREASED [None]
